FAERS Safety Report 21869681 (Version 1)
Quarter: 2023Q1

REPORT INFORMATION
  Report Type: Report from Study
  Country: CH (occurrence: CH)
  Receive Date: 20230117
  Receipt Date: 20230117
  Transmission Date: 20230418
  Serious: Yes (Hospitalization)
  Sender: FDA-Public Use
  Company Number: CH-ABBVIE-4272538

PATIENT
  Age: 36 Year
  Sex: Male

DRUGS (2)
  1. CARBIDOPA\LEVODOPA [Suspect]
     Active Substance: CARBIDOPA\LEVODOPA
     Indication: Parkinson^s disease
     Dosage: MD: 3 ML, CRD: 2.8 ML/H, CRN: 2 ML/H, ED: 1 ML?24H THERAPY
     Route: 050
     Dates: start: 20221214
  2. CARBIDOPA\LEVODOPA [Suspect]
     Active Substance: CARBIDOPA\LEVODOPA
     Dosage: MD: 5 ML, CRD: 3.2 ML/H, CRN: 2 ML/H, ED: 1 ML
     Route: 050
     Dates: start: 20221212, end: 20221214

REACTIONS (3)
  - Loss of consciousness [Unknown]
  - Pneumonia [Unknown]
  - General physical health deterioration [Not Recovered/Not Resolved]

NARRATIVE: CASE EVENT DATE: 20230101
